FAERS Safety Report 11214191 (Version 2)
Quarter: 2015Q2

REPORT INFORMATION
  Report Type: Spontaneous
  Country: VE (occurrence: VE)
  Receive Date: 20150623
  Receipt Date: 20150629
  Transmission Date: 20150821
  Serious: Yes (Other)
  Sender: FDA-Public Use
  Company Number: VE-AMGEN-VENSP2015060964

PATIENT
  Age: 55 Year
  Sex: Female

DRUGS (1)
  1. ENBREL [Suspect]
     Active Substance: ETANERCEPT
     Indication: RHEUMATOID ARTHRITIS
     Dosage: 50 MG, WEEKLY
     Route: 065
     Dates: start: 2006

REACTIONS (4)
  - Disease recurrence [Recovered/Resolved]
  - Rheumatoid arthritis [Recovered/Resolved]
  - Drug effect decreased [Unknown]
  - Neoplasm [Recovered/Resolved]

NARRATIVE: CASE EVENT DATE: 2011
